FAERS Safety Report 6813482-2 (Version None)
Quarter: 2010Q3

REPORT INFORMATION
  Report Type: 
  Country: None (occurrence: None)
  Receive Date: 20100701
  Receipt Date: 20100624
  Transmission Date: 20110219
  Serious: Yes (Disabling, Other)
  Sender: FDA-Public Use
  Company Number: US-ABBOTT-09P-163-0562042-00

PATIENT
  Sex: Male
  Weight: 63.56 kg

DRUGS (5)
  1. HUMIRA [Suspect]
     Indication: RHEUMATOID ARTHRITIS
     Dates: start: 20081017, end: 20090217
  2. VICODIN [Concomitant]
     Indication: PAIN MANAGEMENT
     Dosage: UNKNOWN
  3. SEMAMBUTOL [Concomitant]
     Indication: PRODUCT USED FOR UNKNOWN INDICATION
  4. MYCOBUTIN [Concomitant]
     Indication: PRODUCT USED FOR UNKNOWN INDICATION
  5. CLARITHROMYCIN [Concomitant]
     Indication: PRODUCT USED FOR UNKNOWN INDICATION

REACTIONS (8)
  - DEBRIDEMENT [None]
  - ILL-DEFINED DISORDER [None]
  - IMPAIRED WORK ABILITY [None]
  - JOINT SWELLING [None]
  - JOINT TUBERCULOSIS [None]
  - MOTOR DYSFUNCTION [None]
  - PAIN IN EXTREMITY [None]
  - WRIST DEFORMITY [None]
